FAERS Safety Report 23075121 (Version 2)
Quarter: 2024Q1

REPORT INFORMATION
  Report Type: Spontaneous
  Country: CA (occurrence: CA)
  Receive Date: 20231017
  Receipt Date: 20240103
  Transmission Date: 20240410
  Serious: Yes (Life-Threatening, Hospitalization)
  Sender: FDA-Public Use
  Company Number: CA-PFIZER INC-202300324920

PATIENT
  Age: 4 Year
  Sex: Male
  Weight: 18 kg

DRUGS (5)
  1. METHOTREXATE SODIUM [Suspect]
     Active Substance: METHOTREXATE SODIUM
  2. VINCRISTINE SULFATE [Suspect]
     Active Substance: VINCRISTINE SULFATE
  3. DEXAMETHASONE [Suspect]
     Active Substance: DEXAMETHASONE
  4. ASPARAGINASE [Suspect]
     Active Substance: ASPARAGINASE
  5. ONCASPAR [Suspect]
     Active Substance: PEGASPARGASE
     Route: 042

REACTIONS (1)
  - Febrile neutropenia [Recovered/Resolved]
